FAERS Safety Report 23686003 (Version 1)
Quarter: 2024Q1

REPORT INFORMATION
  Report Type: Spontaneous
  Country: CN (occurrence: CN)
  Receive Date: 20240329
  Receipt Date: 20240329
  Transmission Date: 20240410
  Serious: Yes (Hospitalization, Other)
  Sender: FDA-Public Use
  Company Number: CN-JNJFOC-20240361151

PATIENT
  Age: 58 Year
  Sex: Male

DRUGS (1)
  1. DARZALEX [Suspect]
     Active Substance: DARATUMUMAB
     Indication: Plasma cell myeloma
     Route: 041
     Dates: start: 20240307, end: 20240307

REACTIONS (11)
  - Oxygen saturation decreased [Recovering/Resolving]
  - Tachypnoea [Recovering/Resolving]
  - Tremor [Recovering/Resolving]
  - Infusion related reaction [Recovering/Resolving]
  - Cardiac disorder [Recovering/Resolving]
  - Pyrexia [Recovering/Resolving]
  - Chills [Recovering/Resolving]
  - Wheezing [Recovering/Resolving]
  - Temperature intolerance [Recovering/Resolving]
  - Blood pressure increased [Recovering/Resolving]
  - Rales [Recovering/Resolving]
